FAERS Safety Report 5572078-3 (Version None)
Quarter: 2007Q4

REPORT INFORMATION
  Report Type: 
  Country: None (occurrence: None)
  Receive Date: 20071221
  Receipt Date: 20071211
  Transmission Date: 20080405
  Serious: Yes (Other)
  Sender: FDA-Public Use
  Company Number: EG-PFIZER INC-2007084280

PATIENT
  Age: 68 Year
  Sex: Male
  Weight: 65 kg

DRUGS (7)
  1. LYRICA [Suspect]
     Indication: POST HERPETIC NEURALGIA
     Route: 048
     Dates: start: 20070915, end: 20071004
  2. NATRILIX - SLOW RELEASE [Concomitant]
     Indication: HYPERTENSION
     Route: 048
  3. CARDURA [Concomitant]
     Route: 048
  4. SELENIUM-ACE [Concomitant]
  5. NEUROVIT [Concomitant]
  6. NEURONTIN [Concomitant]
     Route: 048
     Dates: start: 20070913, end: 20071006
  7. ALPHA LIPOIC ACID [Concomitant]
     Route: 048

REACTIONS (8)
  - DIPLOPIA [None]
  - DIZZINESS [None]
  - EXTRAOCULAR MUSCLE PARESIS [None]
  - EYE PAIN [None]
  - GAIT DISTURBANCE [None]
  - OPTIC NEURITIS [None]
  - PARESIS [None]
  - SOMNOLENCE [None]
